FAERS Safety Report 7215137-1 (Version None)
Quarter: 2011Q1

REPORT INFORMATION
  Report Type: 
  Country: None (occurrence: None)
  Receive Date: 20110107
  Receipt Date: 20100923
  Transmission Date: 20110831
  Serious: No
  Sender: FDA-Public Use
  Company Number: A0880297A

PATIENT
  Age: 80 Year
  Sex: Female

DRUGS (5)
  1. METOPROLOL [Concomitant]
  2. LOVAZA [Suspect]
     Indication: BLOOD CHOLESTEROL INCREASED
     Route: 048
     Dates: start: 20090901, end: 20100401
  3. METFORMIN [Concomitant]
  4. PLAVIX [Concomitant]
  5. EFFEXOR [Concomitant]

REACTIONS (2)
  - HAIR TEXTURE ABNORMAL [None]
  - ALOPECIA [None]
